FAERS Safety Report 18840160 (Version 3)
Quarter: 2021Q2

REPORT INFORMATION
  Report Type: Spontaneous
  Country: US (occurrence: US)
  Receive Date: 20210203
  Receipt Date: 20210509
  Transmission Date: 20210717
  Serious: No
  Sender: FDA-Public Use
  Company Number: US-LUPIN PHARMACEUTICALS INC.-2021-00948

PATIENT
  Age: 65 Year
  Sex: Male
  Weight: 90.7 kg

DRUGS (2)
  1. TESTOSTERONE GEL 1.62% [Suspect]
     Active Substance: TESTOSTERONE
     Indication: MENTAL DISORDER
     Dosage: UNK, QD (1 OR 2 YEARS)
     Route: 062
  2. TESTOSTERONE GEL 1.62% [Suspect]
     Active Substance: TESTOSTERONE
     Dosage: 3.75 GRAM, QD (3 PUMPS ONCE DAILY)
     Route: 062
     Dates: start: 202101

REACTIONS (4)
  - Product quality issue [Unknown]
  - Drug dose omission by device [Unknown]
  - Device malfunction [Unknown]
  - No adverse event [Unknown]

NARRATIVE: CASE EVENT DATE: 20210121
